FAERS Safety Report 4628282-1 (Version None)
Quarter: 2005Q2

REPORT INFORMATION
  Report Type: 
  Country: None (occurrence: None)
  Receive Date: 20050406
  Receipt Date: 20050218
  Transmission Date: 20051028
  Serious: Yes (Hospitalization)
  Sender: FDA-Public Use
  Company Number: US-AMGEN-KDL113122

PATIENT
  Sex: Female
  Weight: 52 kg

DRUGS (12)
  1. PROCRIT [Suspect]
     Indication: RENAL FAILURE CHRONIC
     Route: 058
     Dates: start: 20041117, end: 20041230
  2. CELLCEPT [Concomitant]
  3. PREDNISONE [Concomitant]
  4. LOVENOX [Concomitant]
  5. ACTONEL (PROCTOR + GAMBLE) [Concomitant]
  6. VASOTEC [Concomitant]
  7. PLAQUENIL [Concomitant]
  8. SYNTHROID [Concomitant]
  9. PROTONIX [Concomitant]
  10. LIPITOR [Concomitant]
  11. ELAVIL [Concomitant]
  12. ASPIRIN [Concomitant]

REACTIONS (4)
  - CONDITION AGGRAVATED [None]
  - HAEMOGLOBIN DECREASED [None]
  - LUPUS PNEUMONITIS [None]
  - SYSTEMIC LUPUS ERYTHEMATOSUS [None]
